FAERS Safety Report 5290755-9 (Version None)
Quarter: 2007Q2

REPORT INFORMATION
  Report Type: 
  Country: None (occurrence: None)
  Receive Date: 20070409
  Receipt Date: 20070328
  Transmission Date: 20071010
  Serious: Yes (Hospitalization)
  Sender: FDA-Public Use
  Company Number: US-ROCHE-455493

PATIENT
  Age: 19 Year
  Sex: Male
  Weight: 62.6 kg

DRUGS (3)
  1. ACCUTANE [Suspect]
     Route: 048
     Dates: start: 20000522, end: 20000828
  2. ACCUTANE [Suspect]
     Route: 048
     Dates: start: 20000828, end: 20010111
  3. VITAMIN E [Concomitant]
     Indication: CHEILITIS
     Route: 048
     Dates: start: 20000522

REACTIONS (10)
  - ARTHRALGIA [None]
  - COLITIS [None]
  - COLITIS ULCERATIVE [None]
  - INTESTINAL HAEMORRHAGE [None]
  - INTESTINAL OBSTRUCTION [None]
  - IRON DEFICIENCY ANAEMIA [None]
  - IRRITABLE BOWEL SYNDROME [None]
  - PARAESTHESIA [None]
  - RECTAL HAEMORRHAGE [None]
  - TENDONITIS [None]
